FAERS Safety Report 8089753-1 (Version None)
Quarter: 2012Q1

REPORT INFORMATION
  Report Type: 
  Country: None (occurrence: None)
  Receive Date: 20120128
  Receipt Date: 20110705
  Transmission Date: 20120608
  Serious: No
  Sender: FDA-Public Use
  Company Number: US-ABBOTT-11P-163-0836127-00

PATIENT
  Sex: Female
  Weight: 81.72 kg

DRUGS (4)
  1. UNKNOWN DEPRESSION AND ANXIETY MEDICATION [Concomitant]
     Indication: DEPRESSION
  2. HUMIRA [Suspect]
     Indication: PSORIATIC ARTHROPATHY
     Dates: start: 20101001
  3. UNKNOWN DEPRESSION AND ANXIETY MEDICATION [Concomitant]
     Indication: ANXIETY
  4. UNKNOWN BLOOD PRESSURE MEDICATION [Concomitant]
     Indication: HYPERTENSION

REACTIONS (1)
  - RASH PAPULAR [None]
